FAERS Safety Report 8937256 (Version 1)
Quarter: 2012Q4

REPORT INFORMATION
  Report Type: Spontaneous
  Country: US (occurrence: None)
  Receive Date: 20121128
  Receipt Date: 20121128
  Transmission Date: 20130627
  Serious: Yes (Life-Threatening)
  Sender: FDA-Public Use
  Company Number: None

PATIENT
  Age: 79 Year
  Sex: Female
  Weight: 77 kg

DRUGS (1)
  1. PRADAXA [Suspect]
     Indication: ATRIAL FIBRILLATION
     Dosage: 150mg daily po
     Route: 048
     Dates: start: 20111031, end: 20120918

REACTIONS (5)
  - Subdural haematoma [None]
  - Brain midline shift [None]
  - Activated partial thromboplastin time prolonged [None]
  - International normalised ratio decreased [None]
  - Idiosyncratic drug reaction [None]
